FAERS Safety Report 8970168 (Version 2)
Quarter: 2013Q1

REPORT INFORMATION
  Report Type: Spontaneous
  Country: US (occurrence: US)
  Receive Date: 20121217
  Receipt Date: 20130205
  Transmission Date: 20140127
  Serious: Yes (Other)
  Sender: FDA-Public Use
  Company Number: US-PFIZER INC-2012313746

PATIENT
  Age: 55 Year
  Sex: Female
  Weight: 92.97 kg

DRUGS (3)
  1. ROBITUSSIN DM [Suspect]
     Indication: RESPIRATORY DISORDER
     Dosage: TWO TEASPOONS, AS NEEDED
     Dates: end: 20121203
  2. ROBITUSSIN DM [Suspect]
     Indication: ANTITUSSIVE THERAPY
  3. IBUPROFEN [Concomitant]
     Indication: PAIN
     Dosage: 800 MG, UNK

REACTIONS (3)
  - Pneumonia [Unknown]
  - Migraine [Recovered/Resolved]
  - Product formulation issue [Unknown]
